FAERS Safety Report 15240232 (Version 1)
Quarter: 2018Q3

REPORT INFORMATION
  Report Type: Spontaneous
  Country: US (occurrence: US)
  Receive Date: 20180804
  Receipt Date: 20180804
  Transmission Date: 20181010
  Serious: Yes (Other)
  Sender: FDA-Public Use
  Company Number: US-ACCORD-070297

PATIENT
  Age: 69 Year
  Sex: Male

DRUGS (3)
  1. OXALIPLATIN. [Suspect]
     Active Substance: OXALIPLATIN
     Indication: ADENOCARCINOMA OF COLON
  2. FLUOROURACIL. [Suspect]
     Active Substance: FLUOROURACIL
     Indication: ADENOCARCINOMA OF COLON
  3. FOLINIC ACID [Suspect]
     Active Substance: LEUCOVORIN
     Indication: ADENOCARCINOMA OF COLON

REACTIONS (1)
  - Organising pneumonia [Recovering/Resolving]
